FAERS Safety Report 25874981 (Version 4)
Quarter: 2025Q4

REPORT INFORMATION
  Report Type: Spontaneous
  Country: CN (occurrence: CN)
  Receive Date: 20251002
  Receipt Date: 20251017
  Transmission Date: 20260117
  Serious: Yes (Hospitalization, Other)
  Sender: SANOFI AVENTIS
  Company Number: CN-MLMSERVICE-20250919-PI648824-00249-1

PATIENT
  Age: 65 Year
  Sex: Female
  Weight: 44 kg

DRUGS (10)
  1. CAPECITABINE [Suspect]
     Active Substance: CAPECITABINE
     Indication: Adenocarcinoma of colon
     Dosage: 2.5 G, QD (1.5G IN THE MORNING AND 1.0G IN THE EVENING (DAYS 1-14/EVERY 21 DAYS)
     Dates: start: 20230802, end: 20230815
  2. CAPECITABINE [Suspect]
     Active Substance: CAPECITABINE
     Dosage: 2.5 G, QD (1.5G IN THE MORNING AND 1.0G IN THE EVENING (DAYS 1-14/EVERY 21 DAYS)
     Dates: start: 20230904, end: 20230917
  3. CAPECITABINE [Suspect]
     Active Substance: CAPECITABINE
     Dosage: 2.5 G, QD (1.5G IN THE MORNING AND 1.0G IN THE EVENING (DAYS 1-14/EVERY 21 DAYS)
     Dates: start: 20231008, end: 20231021
  4. CAPECITABINE [Suspect]
     Active Substance: CAPECITABINE
     Dosage: 2.5 G, QD (1.5G IN THE MORNING AND 1.0G IN THE EVENING (DAYS 1-14/EVERY 21 DAYS)
     Dates: start: 20231103, end: 20231116
  5. CAPECITABINE [Suspect]
     Active Substance: CAPECITABINE
     Dosage: 2.5 G, QD (1.5G IN THE MORNING AND 1.0G IN THE EVENING (DAYS 1-14/EVERY 21 DAYS)
     Dates: start: 20231205, end: 20231218
  6. OXALIPLATIN [Suspect]
     Active Substance: OXALIPLATIN
     Indication: Adenocarcinoma of colon
     Dosage: 180 MG, QCY (DAY 1)
     Dates: start: 20230802, end: 20230802
  7. OXALIPLATIN [Suspect]
     Active Substance: OXALIPLATIN
     Dosage: 180 MG, QCY (DAY 1)
     Dates: start: 20230904, end: 20230904
  8. OXALIPLATIN [Suspect]
     Active Substance: OXALIPLATIN
     Dosage: 180 MG, QCY (DAY 1)
     Dates: start: 20231008, end: 20231008
  9. OXALIPLATIN [Suspect]
     Active Substance: OXALIPLATIN
     Dosage: 180 MG, QCY (DAY 1)
     Dates: start: 20231103, end: 20231103
  10. OXALIPLATIN [Suspect]
     Active Substance: OXALIPLATIN
     Dosage: 180 MG, QCY (DAY 1)
     Dates: start: 20231205, end: 20231205

REACTIONS (5)
  - Interstitial lung disease [Recovered/Resolved]
  - Condition aggravated [Recovered/Resolved]
  - Pneumonitis [Recovered/Resolved]
  - Dyspnoea [Recovered/Resolved]
  - Wheezing [Recovered/Resolved]

NARRATIVE: CASE EVENT DATE: 20231031
